FAERS Safety Report 19084232 (Version 2)
Quarter: 2021Q2

REPORT INFORMATION
  Report Type: Report from Study
  Country: CO (occurrence: CO)
  Receive Date: 20210401
  Receipt Date: 20210409
  Transmission Date: 20210717
  Serious: Yes (Death, Hospitalization)
  Sender: FDA-Public Use
  Company Number: NVSC2021CO074112

PATIENT
  Age: 43 Year
  Weight: 54 kg

DRUGS (3)
  1. KISQALI [Suspect]
     Active Substance: RIBOCICLIB
     Dosage: 600 MG, QD (AT NIGHT)
     Route: 048
     Dates: start: 20210326
  2. FEMARA [Suspect]
     Active Substance: LETROZOLE
     Indication: BREAST CANCER
     Dosage: 2.5 MG, QD
     Route: 048
     Dates: start: 20210313
  3. KISQALI [Suspect]
     Active Substance: RIBOCICLIB
     Indication: BREAST CANCER METASTATIC
     Dosage: 600 MG, QD (200 MG IN THE MORNING, 200 MG IN THE AFTERNOON, 200 MG IN THE NIGHT)
     Route: 048
     Dates: start: 20210313, end: 20210326

REACTIONS (12)
  - Pain in extremity [Unknown]
  - Peripheral swelling [Unknown]
  - Dysphagia [Unknown]
  - Swelling [Unknown]
  - Blood bilirubin increased [Unknown]
  - Lymphocyte count decreased [Unknown]
  - Death [Fatal]
  - Hypertension [Unknown]
  - Dyspnoea [Unknown]
  - Product prescribing error [Unknown]
  - Haemoglobin decreased [Unknown]
  - Blister [Unknown]

NARRATIVE: CASE EVENT DATE: 20210318
